FAERS Safety Report 7129122-1 (Version None)
Quarter: 2010Q4

REPORT INFORMATION
  Report Type: 
  Country: None (occurrence: None)
  Receive Date: 20101130
  Receipt Date: 20101118
  Transmission Date: 20110411
  Serious: Yes (Hospitalization, Other)
  Sender: FDA-Public Use
  Company Number: US-ROCHE-722597

PATIENT
  Sex: Female
  Weight: 83.9 kg

DRUGS (1)
  1. ACCUTANE [Suspect]
     Indication: ACNE
     Dosage: DOSE: 40 MG TWICE A DAY AND 20 MG DAILY.
     Route: 065
     Dates: start: 19981204, end: 19990320

REACTIONS (12)
  - ABDOMINAL PAIN [None]
  - ANAL FISSURE [None]
  - ARTHRITIS ENTEROPATHIC [None]
  - BLOOD PRESSURE INCREASED [None]
  - CROHN'S DISEASE [None]
  - HEADACHE [None]
  - HEPATIC ENZYME INCREASED [None]
  - INFLAMMATORY BOWEL DISEASE [None]
  - LIP DRY [None]
  - NAUSEA [None]
  - PALPITATIONS [None]
  - RECTAL HAEMORRHAGE [None]
